FAERS Safety Report 8570896 (Version 2)
Quarter: 2012Q4

REPORT INFORMATION
  Report Type: 
  Country: US (occurrence: US)
  Receive Date: 20120521
  Receipt Date: 20121001
  Transmission Date: 20130627
  Serious: Yes (Hospitalization)
  Sender: FDA-Public Use
  Company Number: US-BAYER-2012-049195

PATIENT
  Age: 43 Year
  Sex: Female
  Weight: 80 kg

DRUGS (7)
  1. YASMIN [Suspect]
     Indication: CONTRACEPTION
     Dosage: UNK
     Route: 048
     Dates: start: 200206, end: 200609
  2. ZOLOFT [Concomitant]
     Indication: DEPRESSION
     Dosage: UNK
     Route: 048
     Dates: start: 2001, end: 2009
  3. CLARITIN [Concomitant]
     Indication: MULTIPLE ALLERGIES
     Dosage: 20 days prior to injury
     Route: 048
     Dates: start: 200609
  4. IBUPROFEN [Concomitant]
     Dosage: UNK
     Route: 048
     Dates: start: 20060911
  5. NAPROSYN [Concomitant]
     Dosage: 500 mg, UNK
     Route: 048
     Dates: start: 20060911
  6. SKELAXIN [Concomitant]
     Dosage: 200 mg, UNK
     Route: 048
     Dates: start: 20060911
  7. MEDROL [METHYLPREDNISOLONE] [Concomitant]
     Dosage: UNK
     Route: 048
     Dates: start: 20060926

REACTIONS (8)
  - Thrombophlebitis superficial [None]
  - Injury [None]
  - Pain [None]
  - General physical health deterioration [None]
  - General physical health deterioration [None]
  - Emotional distress [None]
  - Anxiety [None]
  - Pain [None]
